FAERS Safety Report 4423885-1 (Version None)
Quarter: 2004Q3

REPORT INFORMATION
  Report Type: 
  Country: None (occurrence: None)
  Receive Date: 20040715
  Receipt Date: 20040212
  Transmission Date: 20050211
  Serious: Yes (Other)
  Sender: FDA-Public Use
  Company Number: 2004196598US

PATIENT
  Age: 68 Year
  Sex: Male
  Weight: 79.4 kg

DRUGS (5)
  1. CELEBREX [Suspect]
     Indication: ARTHRITIS
     Dosage: 200 MG, QD, ORAL
     Route: 048
     Dates: start: 20040122, end: 20040125
  2. DILANTIN [Concomitant]
  3. LAMICTAL [Concomitant]
  4. PHENOBARBITAL ^DAK^ (PHENOBARBITAL SODIUM) [Concomitant]
  5. CLORAZEPATE DIPOTASSIUM [Concomitant]

REACTIONS (1)
  - CHEST PAIN [None]
